FAERS Safety Report 25488283 (Version 1)
Quarter: 2025Q2

REPORT INFORMATION
  Report Type: Spontaneous
  Country: US (occurrence: US)
  Receive Date: 20250627
  Receipt Date: 20250627
  Transmission Date: 20250717
  Serious: Yes (Hospitalization)
  Sender: MERCK SHARP & DOHME LLC
  Company Number: US-009507513-2297372

PATIENT
  Age: 54 Year
  Sex: Female
  Weight: 97.1 kg

DRUGS (18)
  1. PEMBROLIZUMAB [Suspect]
     Active Substance: PEMBROLIZUMAB
     Route: 040
     Dates: start: 20240905, end: 20241126
  2. SIGVOTATUG VEDOTIN [Suspect]
     Active Substance: SIGVOTATUG VEDOTIN
     Indication: Lung neoplasm malignant
     Route: 040
     Dates: start: 20250109
  3. FOLIC ACID [Concomitant]
     Active Substance: FOLIC ACID
     Dates: start: 20240819
  4. COMPAZINE [Concomitant]
     Active Substance: PROCHLORPERAZINE MALEATE
     Dates: start: 20240819
  5. ZOFRAN [Concomitant]
     Active Substance: ONDANSETRON HYDROCHLORIDE
     Dates: start: 20240819
  6. LIDODERM [Concomitant]
     Active Substance: LIDOCAINE
     Dates: start: 20240807
  7. ATARAX [Concomitant]
     Active Substance: HYDROXYZINE HYDROCHLORIDE
     Dates: start: 20240716
  8. ZESTORETIC [Concomitant]
     Active Substance: HYDROCHLOROTHIAZIDE\LISINOPRIL
  9. GLUCOTROL XL [Concomitant]
     Active Substance: GLIPIZIDE
     Dates: start: 20230707
  10. LYRICA [Concomitant]
     Active Substance: PREGABALIN
     Dates: start: 2016
  11. POTASSIUM CHLORIDE [Concomitant]
     Active Substance: POTASSIUM CHLORIDE
     Dates: start: 20241114
  12. ELIQUIS [Concomitant]
     Active Substance: APIXABAN
     Dates: start: 20241008
  13. MAGNESIUM [Concomitant]
     Active Substance: MAGNESIUM
     Dates: start: 20241114
  14. SYNTHROID [Concomitant]
     Active Substance: LEVOTHYROXINE SODIUM
     Dates: start: 20241211
  15. PEPCID [Concomitant]
     Active Substance: FAMOTIDINE
     Dates: start: 20250109
  16. IMODIUM [Concomitant]
     Active Substance: LOPERAMIDE HYDROCHLORIDE
     Dates: start: 20241008
  17. MORPHINE [Concomitant]
     Active Substance: MORPHINE
     Dates: start: 20241115
  18. ACETAMINOPHEN [Concomitant]
     Active Substance: ACETAMINOPHEN
     Dates: start: 20240919

REACTIONS (1)
  - Syncope [Recovered/Resolved]

NARRATIVE: CASE EVENT DATE: 20250130
